FAERS Safety Report 8349128-4 (Version None)
Quarter: 2012Q2

REPORT INFORMATION
  Report Type: 
  Country: None (occurrence: None)
  Receive Date: 20120510
  Receipt Date: 20120509
  Transmission Date: 20120825
  Serious: Yes (Other)
  Sender: FDA-Public Use
  Company Number: IE-ABBOTT-12P-229-0894270-00

PATIENT
  Sex: Female

DRUGS (1)
  1. HUMIRA [Suspect]
     Indication: CROHN'S DISEASE
     Dosage: ALT. WEEKS
     Route: 058
     Dates: start: 20111101

REACTIONS (4)
  - DIARRHOEA [None]
  - MALAISE [None]
  - DRUG INEFFECTIVE [None]
  - VOMITING [None]
